FAERS Safety Report 7888352-1 (Version None)
Quarter: 2011Q4

REPORT INFORMATION
  Report Type: 
  Country: None (occurrence: None)
  Receive Date: 20111103
  Receipt Date: 20111026
  Transmission Date: 20120403
  Serious: Yes (Other)
  Sender: FDA-Public Use
  Company Number: PHEH2011US08249

PATIENT
  Sex: Male
  Weight: 64 kg

DRUGS (3)
  1. PRAVACHOL [Concomitant]
  2. RECLAST [Suspect]
     Indication: OSTEOPOROSIS
     Dosage: 5 MG/100ML ONCE YEARLY
     Route: 042
     Dates: start: 20111018, end: 20111018
  3. COZAAR [Concomitant]

REACTIONS (11)
  - URTICARIA [None]
  - MYALGIA [None]
  - ABDOMINAL PAIN [None]
  - FIBRIN D DIMER INCREASED [None]
  - C-REACTIVE PROTEIN INCREASED [None]
  - PAIN [None]
  - NAUSEA [None]
  - CHILLS [None]
  - BONE PAIN [None]
  - CHEST PAIN [None]
  - VOMITING [None]
